FAERS Safety Report 10511451 (Version 2)
Quarter: 2014Q4

REPORT INFORMATION
  Report Type: Spontaneous
  Country: US (occurrence: US)
  Receive Date: 20141010
  Receipt Date: 20141124
  Transmission Date: 20150528
  Serious: Yes (Hospitalization)
  Sender: FDA-Public Use
  Company Number: US-BAYER-2014-149071

PATIENT
  Age: 39 Year
  Sex: Female
  Weight: 102.49 kg

DRUGS (2)
  1. MIRENA [Suspect]
     Active Substance: LEVONORGESTREL
     Indication: CONTRACEPTION
     Dosage: 20 MCG/24HR, CONT
     Route: 015
     Dates: start: 20081215, end: 20121218
  2. TRI-SPRINTEC [Concomitant]
     Active Substance: ETHINYL ESTRADIOL\NORGESTIMATE

REACTIONS (6)
  - Depression [None]
  - Uterine perforation [None]
  - Emotional distress [None]
  - Anxiety [None]
  - Injury [None]
  - Pain [None]

NARRATIVE: CASE EVENT DATE: 201212
